FAERS Safety Report 23795474 (Version 1)
Quarter: 2024Q2

REPORT INFORMATION
  Report Type: Spontaneous
  Country: US (occurrence: US)
  Receive Date: 20240429
  Receipt Date: 20240429
  Transmission Date: 20240715
  Serious: No
  Sender: FDA-Public Use
  Company Number: US-BEH-2024171536

PATIENT
  Sex: Male

DRUGS (1)
  1. HAEGARDA [Suspect]
     Active Substance: HUMAN C1-ESTERASE INHIBITOR
     Indication: Hereditary angioedema
     Dosage: 5600 UNITS, QMT
     Route: 065
     Dates: start: 202402

REACTIONS (3)
  - Sinus congestion [Unknown]
  - Nasal congestion [Unknown]
  - Nasal disorder [Unknown]

NARRATIVE: CASE EVENT DATE: 20240101
